FAERS Safety Report 16088597 (Version 1)
Quarter: 2019Q1

REPORT INFORMATION
  Report Type: Spontaneous
  Country: US (occurrence: US)
  Receive Date: 20190319
  Receipt Date: 20190319
  Transmission Date: 20190418
  Serious: No
  Sender: FDA-Public Use
  Company Number: US-PFIZER INC-2019111390

PATIENT
  Age: 78 Year
  Sex: Female
  Weight: 55.79 kg

DRUGS (1)
  1. LATANOPROST. [Suspect]
     Active Substance: LATANOPROST
     Indication: GLAUCOMA
     Dosage: UNK

REACTIONS (5)
  - Application site swelling [Unknown]
  - Ocular hyperaemia [Unknown]
  - Drug ineffective [Unknown]
  - Lip swelling [Unknown]
  - Prescription drug used without a prescription [Unknown]
